FAERS Safety Report 4607794-0 (Version None)
Quarter: 2005Q1

REPORT INFORMATION
  Report Type: 
  Country: None (occurrence: None)
  Receive Date: 20050314
  Receipt Date: 20050301
  Transmission Date: 20050727
  Serious: Yes (Hospitalization)
  Sender: FDA-Public Use
  Company Number: PHHO2005US03597

PATIENT
  Age: 65 Year
  Sex: Male
  Weight: 89 kg

DRUGS (4)
  1. LOTREL [Suspect]
     Indication: HYPERTENSION
     Dosage: LEVEL 1
     Route: 048
     Dates: start: 20041222
  2. LOTREL [Suspect]
     Dosage: LEVEL 2
     Route: 048
  3. BENAZEPRIL + HCT [Suspect]
     Indication: HYPERTENSION
     Dosage: LEVEL 1
     Route: 048
     Dates: start: 20041222
  4. BENAZEPRIL HCL AND HYDROCHLOROTHIAZIDE [Suspect]
     Dosage: LEVEL 2
     Route: 048

REACTIONS (6)
  - ASTHENIA [None]
  - COLD SWEAT [None]
  - DIZZINESS [None]
  - HYPERHIDROSIS [None]
  - HYPOTENSION [None]
  - LOSS OF CONSCIOUSNESS [None]
